FAERS Safety Report 11250415 (Version 2)
Quarter: 2015Q3

REPORT INFORMATION
  Report Type: Spontaneous
  Country: US (occurrence: US)
  Receive Date: 20150708
  Receipt Date: 20150803
  Transmission Date: 20151125
  Serious: No
  Sender: FDA-Public Use
  Company Number: US-ELI_LILLY_AND_COMPANY-US201009008312

PATIENT
  Sex: Male

DRUGS (2)
  1. SYMBYAX [Suspect]
     Active Substance: FLUOXETINE HYDROCHLORIDE\OLANZAPINE
     Indication: DEPRESSION
     Dates: start: 201006, end: 201008
  2. ZYPREXA [Suspect]
     Active Substance: OLANZAPINE
     Indication: DEPRESSION
     Dates: start: 201008, end: 201009

REACTIONS (9)
  - Thinking abnormal [Unknown]
  - Abnormal behaviour [Unknown]
  - Anxiety [Unknown]
  - Depression [Unknown]
  - Dysarthria [Unknown]
  - Drug resistance [Unknown]
  - Speech disorder [Unknown]
  - Off label use [Recovered/Resolved]
  - Somnolence [Unknown]
